FAERS Safety Report 5207783-1 (Version None)
Quarter: 2006Q4

REPORT INFORMATION
  Report Type: 
  Country: None (occurrence: None)
  Receive Date: 20061030
  Receipt Date: 20060811
  Transmission Date: 20070319
  Serious: No
  Sender: FDA-Public Use
  Company Number: 256036

PATIENT
  Age: 63 Year
  Sex: Male
  Weight: 115.6 kg

DRUGS (7)
  1. NOVOLOG [Suspect]
     Indication: INSULIN-REQUIRING TYPE II DIABETES MELLITUS
     Dosage: SEE IMAGE, SUBCUTANEOUS
     Route: 058
     Dates: start: 20060807
  2. LEVEMIR [Suspect]
     Indication: INSULIN-REQUIRING TYPE II DIABETES MELLITUS
     Dosage: 50 IU, QD, SUBCUTANEOUS
     Route: 058
     Dates: start: 20060807
  3. LEVEMIR [Suspect]
     Indication: INSULIN-REQUIRING TYPE II DIABETES MELLITUS
     Dosage: 50 IU, QD, SUBCUTANEOUS
     Route: 058
     Dates: start: 20060814
  4. LEVEMIR [Concomitant]
  5. NORVASC [Concomitant]
  6. ZOCOR [Concomitant]
  7. PERCOCET (PARACETAMOL, OXYCODONE TEREPHTHALATE, OXYCODONE HYDROCHLORID [Concomitant]

REACTIONS (3)
  - BLOOD GLUCOSE INCREASED [None]
  - BURNING SENSATION [None]
  - POLLAKIURIA [None]
